FAERS Safety Report 4884503-1 (Version None)
Quarter: 2005Q4

REPORT INFORMATION
  Report Type: 
  Country: None (occurrence: None)
  Receive Date: 20051201
  Receipt Date: 20050912
  Transmission Date: 20060501
  Serious: No
  Sender: FDA-Public Use
  Company Number: 2005PV002068

PATIENT
  Age: 78 Year
  Sex: Male
  Weight: 83.4619 kg

DRUGS (8)
  1. BYETTA [Suspect]
     Indication: DIABETES MELLITUS NON-INSULIN-DEPENDENT
     Dosage: 5 MCG;BID;SC
     Route: 058
     Dates: start: 20050829
  2. GLIPIZIDE [Concomitant]
  3. ACTOS [Concomitant]
  4. LISINOPRIL [Concomitant]
  5. TERAZOSIN [Concomitant]
  6. SIMVASTATIN [Concomitant]
  7. ATENOLOL [Concomitant]
  8. GLIPIZIDE ER [Concomitant]

REACTIONS (2)
  - CONSTIPATION [None]
  - NAUSEA [None]
